FAERS Safety Report 10004401 (Version 2)
Quarter: 2014Q1

REPORT INFORMATION
  Report Type: Spontaneous
  Country: US (occurrence: US)
  Receive Date: 20140312
  Receipt Date: 20140312
  Transmission Date: 20141002
  Serious: No
  Sender: FDA-Public Use
  Company Number: US-GILEAD-2012-0060249

PATIENT
  Sex: Female

DRUGS (2)
  1. LETAIRIS [Suspect]
     Indication: PULMONARY ARTERIAL HYPERTENSION
     Dosage: 5 MG, UNK
     Route: 048
     Dates: start: 20120515
  2. LETAIRIS [Suspect]
     Dosage: 2.5 MG, QD
     Dates: start: 20120516

REACTIONS (3)
  - Hypotension [Unknown]
  - Unevaluable event [Unknown]
  - No therapeutic response [Unknown]
